FAERS Safety Report 24547482 (Version 1)
Quarter: 2024Q4

REPORT INFORMATION
  Report Type: Spontaneous
  Country: IN (occurrence: IN)
  Receive Date: 20241025
  Receipt Date: 20241025
  Transmission Date: 20250114
  Serious: Yes (Hospitalization, Other)
  Sender: SANOFI AVENTIS
  Company Number: IN-SA-2024SA304733

PATIENT
  Age: 63 Year
  Sex: Male
  Weight: 60 kg

DRUGS (2)
  1. GLIMEPIRIDE [Suspect]
     Active Substance: GLIMEPIRIDE
     Indication: Type 2 diabetes mellitus
     Dosage: UNK
  2. METFORMIN HYDROCHLORIDE [Suspect]
     Active Substance: METFORMIN HYDROCHLORIDE
     Indication: Type 2 diabetes mellitus
     Dosage: UNK

REACTIONS (7)
  - Hyperglycaemic hyperosmolar nonketotic syndrome [Recovered/Resolved]
  - Treatment noncompliance [Recovered/Resolved]
  - Ballismus [Recovered/Resolved]
  - Dyskinesia [Recovered/Resolved]
  - Choreoathetosis [Recovered/Resolved]
  - Chorea [Recovered/Resolved]
  - Gait disturbance [Recovered/Resolved]
